FAERS Safety Report 6257285-9 (Version None)
Quarter: 2009Q3

REPORT INFORMATION
  Report Type: 
  Country: None (occurrence: None)
  Receive Date: 20090706
  Receipt Date: 20090624
  Transmission Date: 20100115
  Serious: Yes (Hospitalization)
  Sender: FDA-Public Use
  Company Number: ID-ELI_LILLY_AND_COMPANY-ID200906002312

PATIENT
  Age: 39 Year
  Sex: Male

DRUGS (6)
  1. OLANZAPINE [Suspect]
     Indication: INSOMNIA
     Dosage: 20 MG, UNK
     Dates: end: 20090601
  2. OLANZAPINE [Suspect]
     Dosage: 10 D/F, DAILY (1/D)
     Route: 048
     Dates: start: 20090607, end: 20090607
  3. ESILGAN [Concomitant]
     Dosage: 3 D/F, UNK
     Route: 048
     Dates: start: 20090607, end: 20090607
  4. ARTANE [Concomitant]
     Dosage: 3 D/F, UNK
     Dates: start: 20090607, end: 20090607
  5. ZOLPIDEM TARTRATE [Concomitant]
     Dosage: 6 D/F, UNK
     Dates: start: 20090607, end: 20090607
  6. HALOPERIDOL [Concomitant]
     Dosage: 10 D/F, UNK
     Dates: start: 20090607, end: 20090607

REACTIONS (3)
  - HOSPITALISATION [None]
  - MUSCLE RIGIDITY [None]
  - SPEECH DISORDER [None]
